FAERS Safety Report 4384072-9 (Version None)
Quarter: 2004Q2

REPORT INFORMATION
  Report Type: 
  Country: None (occurrence: None)
  Receive Date: 20040622
  Receipt Date: 20040622
  Transmission Date: 20050107
  Serious: Yes (Death, Hospitalization)
  Sender: FDA-Public Use
  Company Number: None

PATIENT
  Age: 83 Year
  Sex: Female
  Weight: 41.7309 kg

DRUGS (6)
  1. DIGOXIN [Suspect]
     Indication: ATRIAL FIBRILLATION
  2. LEVOTHYROXINE SODIUM [Concomitant]
  3. SERTRALINE HCL [Concomitant]
  4. DONEPEZIL HCL [Concomitant]
  5. AMIODARONE HCL [Concomitant]
  6. LASIX [Concomitant]

REACTIONS (6)
  - ASTHENIA [None]
  - DYSPNOEA EXACERBATED [None]
  - ELECTROCARDIOGRAM ST SEGMENT ABNORMAL [None]
  - MENTAL STATUS CHANGES [None]
  - NODAL RHYTHM [None]
  - THERAPEUTIC AGENT TOXICITY [None]
